FAERS Safety Report 7478427-3 (Version None)
Quarter: 2011Q2

REPORT INFORMATION
  Report Type: 
  Country: None (occurrence: None)
  Receive Date: 20110513
  Receipt Date: 20100615
  Transmission Date: 20111010
  Serious: Yes (Hospitalization, Other)
  Sender: FDA-Public Use
  Company Number: US-PFIZER INC-2010069013

PATIENT
  Age: 68 Year
  Sex: Male

DRUGS (1)
  1. CELEBREX [Suspect]
     Indication: PAIN
     Dosage: 200 MG, UNK

REACTIONS (5)
  - VOMITING [None]
  - MALAISE [None]
  - RECTAL HAEMORRHAGE [None]
  - DIARRHOEA [None]
  - HAEMATEMESIS [None]
